FAERS Safety Report 8338887-2 (Version None)
Quarter: 2012Q2

REPORT INFORMATION
  Report Type: 
  Country: None (occurrence: None)
  Receive Date: 20120506
  Receipt Date: 20111203
  Transmission Date: 20120825
  Serious: Yes (Other)
  Sender: FDA-Public Use
  Company Number: PHEH2011US013067

PATIENT
  Sex: Male

DRUGS (1)
  1. MYFORTIC [Suspect]
     Dosage: 180 MG, 2 BID
     Route: 048
     Dates: start: 20100901, end: 20111203

REACTIONS (1)
  - RENAL FAILURE [None]
